FAERS Safety Report 6734069-6 (Version None)
Quarter: 2010Q2

REPORT INFORMATION
  Report Type: 
  Country: None (occurrence: None)
  Receive Date: 20100520
  Receipt Date: 20100517
  Transmission Date: 20101027
  Serious: Yes (Death)
  Sender: FDA-Public Use
  Company Number: US-ELI_LILLY_AND_COMPANY-US201003008447

PATIENT
  Sex: Male
  Weight: 62.8 kg

DRUGS (17)
  1. PEMETREXED [Suspect]
     Indication: NON-SMALL CELL LUNG CANCER
     Dosage: 500 MG/M2, OTHER
     Route: 042
     Dates: start: 20100225, end: 20100317
  2. CARBOPLATIN [Suspect]
     Indication: NON-SMALL CELL LUNG CANCER
     Dosage: 6 D/F, OTHER
     Route: 042
     Dates: start: 20100225, end: 20100317
  3. BEVACIZUMAB [Suspect]
     Indication: NON-SMALL CELL LUNG CANCER
     Dosage: 15 MG/KG, OTHER
     Route: 042
     Dates: start: 20100225, end: 20100317
  4. ACETAMINOPHEN [Concomitant]
     Indication: PAIN
     Dosage: UNK, UNK
     Dates: start: 20100121
  5. ALBUTEROL [Concomitant]
     Dosage: UNK, UNK
     Dates: start: 20100317
  6. DEXAMETHASONE [Concomitant]
     Indication: PROPHYLAXIS
     Dosage: UNK, UNK
     Dates: start: 20100121
  7. DURAGESIC-100 [Concomitant]
     Indication: PAIN
     Dosage: UNK, UNK
     Route: 061
     Dates: start: 20100317
  8. LACTULOSE [Concomitant]
     Indication: PROPHYLAXIS
     Dates: start: 20100121
  9. LATANOPROST [Concomitant]
     Indication: GLAUCOMA
     Dosage: UNK, UNK
     Dates: start: 20070101
  10. ATIVAN [Concomitant]
     Indication: PROPHYLAXIS
     Dosage: UNK, UNK
     Dates: start: 20100219
  11. ZOFRAN [Concomitant]
     Indication: PROPHYLAXIS
     Dates: start: 20100126
  12. PRILOSEC [Concomitant]
     Indication: PROPHYLAXIS
     Dosage: UNK, UNK
     Dates: start: 20100112
  13. OXYCODONE [Concomitant]
     Indication: PAIN
     Dosage: UNK, UNK
     Dates: start: 20100121
  14. FLEXERIL [Concomitant]
     Indication: PAIN
     Dosage: UNK, UNK
     Dates: start: 20100111, end: 20100317
  15. COMPAZINE [Concomitant]
     Indication: PROPHYLAXIS
     Dosage: UNK, UNK
     Dates: start: 20100219
  16. FOLIC ACID [Concomitant]
     Indication: SUPPLEMENTATION THERAPY
     Dates: start: 20100218
  17. VITAMIN B-12 [Concomitant]
     Indication: SUPPLEMENTATION THERAPY
     Dates: start: 20100211

REACTIONS (2)
  - HAEMATEMESIS [None]
  - PULMONARY HAEMORRHAGE [None]
